FAERS Safety Report 4945140-3 (Version None)
Quarter: 2006Q1

REPORT INFORMATION
  Report Type: 
  Country: None (occurrence: None)
  Receive Date: 20060117
  Receipt Date: 20041208
  Transmission Date: 20060701
  Serious: Yes (Hospitalization)
  Sender: FDA-Public Use
  Company Number: A03200404161

PATIENT
  Age: 79 Year
  Sex: Male
  Weight: 68 kg

DRUGS (11)
  1. PLAVIX [Suspect]
     Indication: STENT PLACEMENT
     Dosage: 75 MG QD - ORAL
     Route: 048
     Dates: start: 20041003
  2. LOVENOX [Suspect]
     Indication: ANGIOPLASTY
     Dosage: 35 MG QD - INTRAVENOUS NOS
     Route: 042
     Dates: start: 20041006, end: 20041006
  3. ACETYLSALICYLIC ACID SRT [Concomitant]
  4. WARFARIN SODIUM [Concomitant]
  5. DONEPEZIL HYDROCHLORIDE [Concomitant]
  6. RISPERIDONE [Concomitant]
  7. DOCUSATE SODIUM [Concomitant]
  8. TAMSULOSIN HYDROCHLORIDE [Concomitant]
  9. FEXOFENADINE HYDROCHLORIDE [Concomitant]
  10. MEMANTINE HCL [Concomitant]
  11. METOPROLOL SUCCINATE [Concomitant]

REACTIONS (5)
  - ANAEMIA [None]
  - DIZZINESS [None]
  - FATIGUE [None]
  - GASTROINTESTINAL HAEMORRHAGE [None]
  - MELAENA [None]
